FAERS Safety Report 18937934 (Version 1)
Quarter: 2021Q1

REPORT INFORMATION
  Report Type: Spontaneous
  Country: DE (occurrence: DE)
  Receive Date: 20210224
  Receipt Date: 20210224
  Transmission Date: 20210420
  Serious: Yes (Congenital Anomaly, Other)
  Sender: FDA-Public Use
  Company Number: DE-PFIZER INC-2021164841

PATIENT
  Age: 1 Day
  Sex: Female

DRUGS (2)
  1. CYTOTEC [Suspect]
     Active Substance: MISOPROSTOL
     Dosage: 1 TABLET AT 11 A.M.
     Route: 064
     Dates: start: 20201018
  2. CYTOTEC [Suspect]
     Active Substance: MISOPROSTOL
     Indication: LABOUR INDUCTION
     Dosage: ONE TABLET AT 3 P.M. AND ONE TABLET AT 7 P.M.
     Route: 064
     Dates: start: 20201017

REACTIONS (8)
  - Cerebral haemorrhage neonatal [Unknown]
  - Foetal heart rate abnormal [Unknown]
  - Foetal exposure during pregnancy [Unknown]
  - Vein rupture [Unknown]
  - Bone disorder [Unknown]
  - Cerebral infarction [Unknown]
  - Cerebrospinal fluid leakage [Unknown]
  - Newborn head moulding [Unknown]

NARRATIVE: CASE EVENT DATE: 20201017
